FAERS Safety Report 17036460 (Version 3)
Quarter: 2025Q1

REPORT INFORMATION
  Report Type: Spontaneous
  Country: DK (occurrence: DK)
  Receive Date: 20191115
  Receipt Date: 20250116
  Transmission Date: 20250409
  Serious: Yes (Congenital Anomaly)
  Sender: MERCK
  Company Number: None

PATIENT
  Age: 22 Week

DRUGS (1)
  1. ZEPATIER [Suspect]
     Active Substance: ELBASVIR\GRAZOPREVIR
     Indication: Chronic hepatitis C
     Dosage: STRENGTH: 50 MG + 100 MG ONE (1) TABLET DAILY FOR TWELVE WEEKS
     Route: 064

REACTIONS (2)
  - Foetal exposure during pregnancy [Not Recovered/Not Resolved]
  - Cerebral ventricle dilatation [Not Recovered/Not Resolved]

NARRATIVE: CASE EVENT DATE: 20191020
